FAERS Safety Report 6805929-2 (Version None)
Quarter: 2010Q2

REPORT INFORMATION
  Report Type: 
  Country: None (occurrence: None)
  Receive Date: 20100629
  Receipt Date: 20080128
  Transmission Date: 20101027
  Serious: No
  Sender: FDA-Public Use
  Company Number: US-PFIZER INC-2007098921

PATIENT
  Sex: Male
  Weight: 76.363 kg

DRUGS (8)
  1. VIAGRA [Suspect]
     Indication: ERECTILE DYSFUNCTION
     Dates: start: 20071116
  2. PLAVIX [Concomitant]
  3. ASPIRINE [Concomitant]
  4. LOVASTATIN [Concomitant]
  5. ATENOLOL [Concomitant]
  6. VASOTEC [Concomitant]
  7. ENALAPRIL MALEATE [Concomitant]
  8. CENTRUM [Concomitant]

REACTIONS (1)
  - DRUG INEFFECTIVE [None]
